FAERS Safety Report 23230803 (Version 1)
Quarter: 2023Q4

REPORT INFORMATION
  Report Type: Spontaneous
  Country: US (occurrence: US)
  Receive Date: 20231127
  Receipt Date: 20231127
  Transmission Date: 20240110
  Serious: No
  Sender: FDA-Public Use
  Company Number: US-SA-SAC20231121001005

PATIENT
  Sex: Female

DRUGS (9)
  1. DUPIXENT [Suspect]
     Active Substance: DUPILUMAB
     Indication: Neurodermatitis
     Dosage: 600 MG, 1X
     Route: 058
  2. LOVASTATIN [Concomitant]
     Active Substance: LOVASTATIN
  3. DULOXETINE [Concomitant]
     Active Substance: DULOXETINE
  4. ACYCLOVIR [Concomitant]
     Active Substance: ACYCLOVIR
  5. ALENDRONATE [Concomitant]
     Active Substance: ALENDRONATE SODIUM
  6. PANTOPRAZOLE [Concomitant]
     Active Substance: PANTOPRAZOLE
  7. CALCIUM [Concomitant]
     Active Substance: CALCIUM
  8. UNISOM SLEEPMELTS [Concomitant]
     Active Substance: DIPHENHYDRAMINE HYDROCHLORIDE
  9. BUPROPION [Concomitant]
     Active Substance: BUPROPION

REACTIONS (1)
  - Arthritis [Not Recovered/Not Resolved]
